FAERS Safety Report 9272455 (Version 1)
Quarter: 2013Q2

REPORT INFORMATION
  Report Type: Spontaneous
  Country: GB (occurrence: SE)
  Receive Date: 20130506
  Receipt Date: 20130506
  Transmission Date: 20140414
  Serious: Yes (Other)
  Sender: FDA-Public Use
  Company Number: GB-TEVA-402148ISR

PATIENT
  Sex: Female

DRUGS (1)
  1. AMITRIPTYLINE [Suspect]
     Indication: SEDATION
     Route: 065

REACTIONS (2)
  - Small intestine carcinoma [Unknown]
  - Haemoglobin decreased [Unknown]
